FAERS Safety Report 24760676 (Version 1)
Quarter: 2024Q4

REPORT INFORMATION
  Report Type: Spontaneous
  Country: FR (occurrence: FR)
  Receive Date: 20241220
  Receipt Date: 20241220
  Transmission Date: 20250114
  Serious: Yes (Hospitalization)
  Sender: PFIZER
  Company Number: None

PATIENT
  Age: 49 Year
  Sex: Female
  Weight: 81.1 kg

DRUGS (3)
  1. RIFABUTIN [Suspect]
     Active Substance: RIFABUTIN
     Indication: Osteitis
     Dosage: 2 DF, 1X/DAY
     Route: 048
     Dates: start: 20221012, end: 20221029
  2. CEFTAZIDIME [Suspect]
     Active Substance: CEFTAZIDIME
     Indication: Osteitis
     Dosage: UNK
     Route: 042
     Dates: start: 20221007, end: 20221029
  3. VANCOMYCIN [Suspect]
     Active Substance: VANCOMYCIN
     Indication: Osteitis
     Dosage: UNK
     Route: 042
     Dates: start: 20221007, end: 20221029

REACTIONS (3)
  - Mixed liver injury [Recovered/Resolved]
  - Rash maculo-papular [Recovered/Resolved]
  - Off label use [Unknown]

NARRATIVE: CASE EVENT DATE: 20221012
